FAERS Safety Report 13297956 (Version 1)
Quarter: 2017Q1

REPORT INFORMATION
  Report Type: Spontaneous
  Country: AU (occurrence: AU)
  Receive Date: 20170306
  Receipt Date: 20170306
  Transmission Date: 20170428
  Serious: Yes (Hospitalization, Other)
  Sender: FDA-Public Use
  Company Number: AU-AMGEN-AUSSP2017031479

PATIENT
  Age: 66 Year
  Sex: Female

DRUGS (1)
  1. PROLIA [Suspect]
     Active Substance: DENOSUMAB
     Indication: OSTEOPOROSIS POSTMENOPAUSAL
     Dosage: UNK, UNK
     Route: 065

REACTIONS (5)
  - Blood magnesium decreased [Recovered/Resolved]
  - Unevaluable event [Recovered/Resolved]
  - Neoplasm malignant [Recovered/Resolved]
  - Hypocalcaemia [Recovered/Resolved]
  - Malnutrition [Recovered/Resolved]
